FAERS Safety Report 5285513-5 (Version None)
Quarter: 2007Q1

REPORT INFORMATION
  Report Type: 
  Country: None (occurrence: None)
  Receive Date: 20061227
  Receipt Date: 20061026
  Transmission Date: 20070707
  Serious: Yes (Other)
  Sender: FDA-Public Use
  Company Number: A03200606615

PATIENT
  Age: 31 Year
  Sex: Female

DRUGS (3)
  1. AMBIEN [Suspect]
     Indication: INSOMNIA
     Dosage: 12.5 MG ONCE - ORAL
     Route: 048
     Dates: start: 20061015, end: 20061015
  2. YASMIN [Concomitant]
  3. SPIRONOLACTONE [Concomitant]

REACTIONS (5)
  - GAIT DISTURBANCE [None]
  - HALLUCINATION, VISUAL [None]
  - NAUSEA [None]
  - POISONING [None]
  - VOMITING [None]
